FAERS Safety Report 6158416-1 (Version None)
Quarter: 2009Q2

REPORT INFORMATION
  Report Type: 
  Country: None (occurrence: None)
  Receive Date: 20090414
  Receipt Date: 20090414
  Transmission Date: 20091009
  Serious: Yes (Other)
  Sender: FDA-Public Use
  Company Number: None

PATIENT
  Sex: Female
  Weight: 63.5036 kg

DRUGS (1)
  1. CHANTIX [Suspect]
     Indication: SMOKING CESSATION THERAPY
     Dosage: 0.5MG  1 TAB 1 IN AM + PM PO
     Route: 048

REACTIONS (20)
  - AMNESIA [None]
  - BRADYPHRENIA [None]
  - DISTURBANCE IN ATTENTION [None]
  - DYSARTHRIA [None]
  - DYSGEUSIA [None]
  - DYSURIA [None]
  - GAIT DISTURBANCE [None]
  - HALLUCINATION [None]
  - IMPAIRED WORK ABILITY [None]
  - INCOHERENT [None]
  - IRRITABILITY [None]
  - MOVEMENT DISORDER [None]
  - MYDRIASIS [None]
  - NEUROLOGICAL SYMPTOM [None]
  - ORAL DISCOMFORT [None]
  - PERSONALITY CHANGE [None]
  - SOMNOLENCE [None]
  - SPEECH DISORDER [None]
  - TACHYPHRENIA [None]
  - TREATMENT NONCOMPLIANCE [None]
